FAERS Safety Report 9260053 (Version 1)
Quarter: 2013Q2

REPORT INFORMATION
  Report Type: Spontaneous
  Country: US (occurrence: US)
  Receive Date: 20130429
  Receipt Date: 20130429
  Transmission Date: 20140414
  Serious: Yes (Hospitalization, Other)
  Sender: FDA-Public Use
  Company Number: US-BAYER-2013-051727

PATIENT
  Age: 49 Year
  Sex: Female
  Weight: 83.45 kg

DRUGS (3)
  1. YAZ [Suspect]
  2. YASMIN [Suspect]
     Dosage: UNK
     Dates: start: 20060115
  3. DIOVAN [Concomitant]
     Dosage: 160 MG, UNK
     Route: 048
     Dates: start: 20060601

REACTIONS (1)
  - Ischaemic stroke [None]
